FAERS Safety Report 8304488-5 (Version None)
Quarter: 2012Q2

REPORT INFORMATION
  Report Type: 
  Country: None (occurrence: None)
  Receive Date: 20120423
  Receipt Date: 20120413
  Transmission Date: 20120825
  Serious: Yes (Hospitalization)
  Sender: FDA-Public Use
  Company Number: IT-TEVA-334340ISR

PATIENT
  Sex: Female

DRUGS (1)
  1. CARBOPLATIN [Suspect]
     Indication: OVARIAN CANCER RECURRENT
     Dosage: 300 MILLIGRAM; EVERY CYCLIC
     Route: 042
     Dates: start: 20110926, end: 20120402

REACTIONS (1)
  - LOSS OF CONSCIOUSNESS [None]
